FAERS Safety Report 5144082-0 (Version None)
Quarter: 2006Q4

REPORT INFORMATION
  Report Type: 
  Country: None (occurrence: None)
  Receive Date: 20061106
  Receipt Date: 20061026
  Transmission Date: 20070319
  Serious: Yes (Other)
  Sender: FDA-Public Use
  Company Number: FR-GLAXOSMITHKLINE-B0444418A

PATIENT
  Age: 34 Year
  Sex: Female
  Weight: 52 kg

DRUGS (5)
  1. ABACAVIR [Suspect]
     Indication: HIV INFECTION
     Route: 048
     Dates: start: 20061016, end: 20061023
  2. KALETRA [Concomitant]
     Route: 048
     Dates: start: 20061009
  3. NEURONTIN [Concomitant]
     Route: 065
     Dates: start: 20061009
  4. SULFADIAZINE [Concomitant]
     Route: 065
     Dates: start: 20061007
  5. PYRIMETHAMINE TAB [Concomitant]
     Route: 065
     Dates: start: 20061007

REACTIONS (8)
  - ACUTE RESPIRATORY DISTRESS SYNDROME [None]
  - CARDIAC FAILURE [None]
  - ERYTHEMA [None]
  - HYPERSENSITIVITY [None]
  - LUNG DISORDER [None]
  - OEDEMA [None]
  - PYREXIA [None]
  - RASH MACULO-PAPULAR [None]
